FAERS Safety Report 20149815 (Version 1)
Quarter: 2021Q4

REPORT INFORMATION
  Report Type: Spontaneous
  Country: BR (occurrence: BR)
  Receive Date: 20211206
  Receipt Date: 20211206
  Transmission Date: 20220303
  Serious: Yes (Other)
  Sender: FDA-Public Use
  Company Number: BR-NOVOPROD-871290

PATIENT
  Age: 71 Year
  Sex: Male
  Weight: 84.9 kg

DRUGS (10)
  1. INSULIN HUMAN [Suspect]
     Active Substance: INSULIN HUMAN
     Dosage: 80 IU, QD (40 EARLY AND 40 AT NIGHT)
     Route: 065
  2. INSULIN HUMAN [Suspect]
     Active Substance: INSULIN HUMAN
     Indication: Type 2 diabetes mellitus
     Dosage: 50 IU, QD (30IU EARLY AND 20IU AT NIGHT)
     Route: 065
  3. XULTOPHY 100/3.6 [Concomitant]
     Active Substance: INSULIN DEGLUDEC\LIRAGLUTIDE
     Dosage: 18 IU
     Route: 065
  4. XULTOPHY 100/3.6 [Concomitant]
     Active Substance: INSULIN DEGLUDEC\LIRAGLUTIDE
     Dosage: 20  IU
     Route: 065
  5. XULTOPHY 100/3.6 [Concomitant]
     Active Substance: INSULIN DEGLUDEC\LIRAGLUTIDE
     Indication: Type 2 diabetes mellitus
     Dosage: 16 IU
     Route: 065
  6. XULTOPHY 100/3.6 [Concomitant]
     Active Substance: INSULIN DEGLUDEC\LIRAGLUTIDE
     Dosage: 20  IU
     Route: 065
  7. METFORMIN [Concomitant]
     Active Substance: METFORMIN HYDROCHLORIDE
     Dosage: 2 G, QD
     Route: 065
  8. ENALAPRILAT [Concomitant]
     Active Substance: ENALAPRILAT
     Dosage: 10 MG, QD
     Route: 065
  9. LIPIDIL [Concomitant]
     Active Substance: FENOFIBRATE
     Dosage: 200 MG
  10. DAPAGLIFLOZIN [Concomitant]
     Active Substance: DAPAGLIFLOZIN
     Dosage: 10 MG, QD
     Route: 065

REACTIONS (2)
  - Hypoglycaemia [Recovered/Resolved]
  - Diabetic retinopathy [Unknown]

NARRATIVE: CASE EVENT DATE: 20111001
